FAERS Safety Report 10391899 (Version 1)
Quarter: 2014Q3

REPORT INFORMATION
  Report Type: Spontaneous
  Country: DE (occurrence: DE)
  Receive Date: 20140819
  Receipt Date: 20140819
  Transmission Date: 20150326
  Serious: Yes (Other)
  Sender: FDA-Public Use
  Company Number: PHHY2014DE101500

PATIENT
  Sex: Female

DRUGS (1)
  1. RASILEZ [Suspect]
     Active Substance: ALISKIREN
     Dosage: 300 MG, UNK
     Dates: start: 2012

REACTIONS (5)
  - Decubitus ulcer [Unknown]
  - Foreign body [Unknown]
  - Wrong technique in drug usage process [Unknown]
  - Choking [Unknown]
  - Dysgeusia [Unknown]
